FAERS Safety Report 25336004 (Version 2)
Quarter: 2025Q2

REPORT INFORMATION
  Report Type: Spontaneous
  Country: US (occurrence: US)
  Receive Date: 20250520
  Receipt Date: 20250605
  Transmission Date: 20250716
  Serious: No
  Sender: NOBELPHARMA AMERICA, LLC
  Company Number: US-Nobelpharma America, LLC-NPA-2025-00817

PATIENT
  Age: 31 Year
  Sex: Female

DRUGS (1)
  1. HYFTOR [Suspect]
     Active Substance: SIROLIMUS
     Indication: Tuberous sclerosis complex
     Route: 003
     Dates: start: 20231017

REACTIONS (3)
  - Skin burning sensation [Not Recovered/Not Resolved]
  - Dry skin [Not Recovered/Not Resolved]
  - Drug ineffective [Not Recovered/Not Resolved]

NARRATIVE: CASE EVENT DATE: 20231017
